FAERS Safety Report 15856464 (Version 1)
Quarter: 2019Q1

REPORT INFORMATION
  Report Type: Other
  Country: DE (occurrence: DE)
  Receive Date: 20190123
  Receipt Date: 20190123
  Transmission Date: 20190417
  Serious: Yes (Hospitalization, Other)
  Sender: FDA-Public Use
  Company Number: DE-EMCURE PHARMACEUTICALS LTD-2019-EPL-0031

PATIENT

DRUGS (23)
  1. AVASTIN [Suspect]
     Active Substance: BEVACIZUMAB
     Dosage: 500 MILLIGRAM, EVERY WEEK
     Route: 042
     Dates: start: 20141125
  2. AVASTIN [Suspect]
     Active Substance: BEVACIZUMAB
     Dosage: 500 MILLIGRAM, EVERY 2 WEEK
     Route: 042
     Dates: start: 20160126
  3. SIMVASTATIN. [Concomitant]
     Active Substance: SIMVASTATIN
     Indication: HYPERCHOLESTEROLAEMIA
     Dosage: 20 MILLIGRAM, QD
     Route: 048
  4. IRINOTECAN HYDROCHLORIDE. [Suspect]
     Active Substance: IRINOTECAN HYDROCHLORIDE
     Indication: COLORECTAL CANCER
     Dosage: 160 MILLIGRAM, EVERY WEEK
     Route: 042
     Dates: start: 20140923, end: 20141007
  5. NITRENDIPIN [Concomitant]
     Active Substance: NITRENDIPINE
     Indication: HYPERTENSION
     Dosage: 20 MG MILLGRAM(S) EVERY DAYS
     Route: 048
  6. FLUOROURACIL 5 FU [Suspect]
     Active Substance: FLUOROURACIL
     Dosage: 4000 MILLIGRAM, EVERY 2 WEEKS
     Route: 041
     Dates: start: 20150721, end: 20160127
  7. FOLINIC ACID [Concomitant]
     Active Substance: LEUCOVORIN
     Dosage: 1000 MILLIGRAM
     Route: 042
     Dates: start: 20150211, end: 20150212
  8. DEXAMETHASONE. [Concomitant]
     Active Substance: DEXAMETHASONE
     Indication: PROPHYLACTIC CHEMOTHERAPY
     Dosage: 8 MILLIGRAM
     Route: 042
     Dates: start: 20140923
  9. AVASTIN [Suspect]
     Active Substance: BEVACIZUMAB
     Dosage: 500 MILLIGRAM, EVERY WEEK
     Route: 042
     Dates: start: 20141208
  10. AVASTIN [Suspect]
     Active Substance: BEVACIZUMAB
     Dosage: 500 MILLIGRAM, EVERY TWO WEEK
     Route: 042
     Dates: start: 20150428
  11. FLUOROURACIL 5 FU [Suspect]
     Active Substance: FLUOROURACIL
     Indication: COLORECTAL CANCER
     Dosage: 4000 MILLIGRAM, EVERY WEEK
     Route: 041
     Dates: start: 20140923, end: 20150128
  12. FLUOROURACIL 5 FU [Suspect]
     Active Substance: FLUOROURACIL
     Dosage: 4000 MILLIGRAM, EVERY 2 WEEKS
     Route: 041
     Dates: start: 20150331, end: 20160127
  13. FOLINIC ACID [Concomitant]
     Active Substance: LEUCOVORIN
     Dosage: 1000 MILLIGRAM, EVERY 2 WEEKS
     Route: 042
     Dates: start: 20150331, end: 20160127
  14. LISILICH COMP [Concomitant]
     Indication: HYPERTENSION
     Dosage: DAILY DOSE: 40 MG MILLGRAM(S) EVERY DAYS
     Route: 048
  15. ONDANSETRON [Concomitant]
     Active Substance: ONDANSETRON
     Indication: PROPHYLACTIC CHEMOTHERAPY
     Dosage: 8 MILLIGRAM
     Route: 042
     Dates: start: 20140923
  16. FOLINIC ACID [Concomitant]
     Active Substance: LEUCOVORIN
     Dosage: 1000 MILLIGRAM
     Route: 042
     Dates: start: 20140923, end: 20150128
  17. FOLINIC ACID [Concomitant]
     Active Substance: LEUCOVORIN
     Dosage: 1000 MILLIGRAM, EVERY 2 WEEK
     Route: 042
     Dates: start: 20150721, end: 20160127
  18. AVASTIN [Suspect]
     Active Substance: BEVACIZUMAB
     Dosage: 500 MILLIGRAM, 1 WEEK
     Route: 042
     Dates: start: 20141216
  19. AVASTIN [Suspect]
     Active Substance: BEVACIZUMAB
     Dosage: 500 MILLIGRAM, EVERY 2 WEEKS
     Route: 042
     Dates: start: 20151229
  20. FLUOROURACIL 5 FU [Suspect]
     Active Substance: FLUOROURACIL
     Dosage: 4000 MILLIGRAM, EVERY 2 WEEK
     Route: 041
     Dates: start: 20150211, end: 20150212
  21. TAMSULOSIN [Concomitant]
     Active Substance: TAMSULOSIN
     Indication: BENIGN PROSTATIC HYPERPLASIA
     Dosage: 0.4 MILLIGRAM, QD
     Route: 048
  22. AVASTIN [Suspect]
     Active Substance: BEVACIZUMAB
     Indication: COLORECTAL CANCER
     Dosage: 500 MG MILLGRAM(S) EVERY WEEKS
     Route: 042
     Dates: start: 20141007
  23. AVASTIN [Suspect]
     Active Substance: BEVACIZUMAB
     Dosage: 500 MILLIGRAM, EVERY TWO WEEK
     Route: 042
     Dates: start: 20150825

REACTIONS (29)
  - Cholecystitis acute [Recovered/Resolved]
  - Vomiting [Recovered/Resolved]
  - Dyspnoea [Not Recovered/Not Resolved]
  - Paraesthesia [Not Recovered/Not Resolved]
  - Abdominal pain lower [Not Recovered/Not Resolved]
  - Nocturia [Not Recovered/Not Resolved]
  - Nausea [Recovered/Resolved]
  - Constipation [Not Recovered/Not Resolved]
  - Left ventricular hypertrophy [Recovered/Resolved]
  - Osteochondrosis [Not Recovered/Not Resolved]
  - Dyspnoea exertional [Not Recovered/Not Resolved]
  - Gastroenteritis [Recovered/Resolved]
  - Peripheral sensorimotor neuropathy [Not Recovered/Not Resolved]
  - Fall [Unknown]
  - Synovial cyst [Not Recovered/Not Resolved]
  - Upper respiratory tract infection [Recovered/Resolved]
  - Microangiopathy [Not Recovered/Not Resolved]
  - Diarrhoea [Recovered/Resolved]
  - Infection [Recovered/Resolved]
  - Weight decreased [Not Recovered/Not Resolved]
  - Sleep disorder [Not Recovered/Not Resolved]
  - Asthenia [Not Recovered/Not Resolved]
  - Aortic aneurysm [Not Recovered/Not Resolved]
  - Pulmonary hypertension [Not Recovered/Not Resolved]
  - Left atrial dilatation [Not Recovered/Not Resolved]
  - Depression [Not Recovered/Not Resolved]
  - Dizziness [Not Recovered/Not Resolved]
  - Abdominal pain [Recovered/Resolved]
  - Osteoarthritis [Not Recovered/Not Resolved]

NARRATIVE: CASE EVENT DATE: 20141009
